FAERS Safety Report 5368409-X (Version None)
Quarter: 2007Q2

REPORT INFORMATION
  Report Type: 
  Country: None (occurrence: None)
  Receive Date: 20070622
  Receipt Date: 20070622
  Transmission Date: 20071010
  Serious: Yes (Hospitalization)
  Sender: FDA-Public Use
  Company Number: None

PATIENT
  Sex: Male
  Weight: 97.0698 kg

DRUGS (6)
  1. THALIDOMIDE [Suspect]
     Indication: NON-SMALL CELL LUNG CANCER
     Dosage: 100MG  QHS  PO
     Route: 048
     Dates: start: 20070522, end: 20070620
  2. TEMODAR [Suspect]
     Indication: NON-SMALL CELL LUNG CANCER
     Dosage: 100MG QHS 3WKS ON, 1WK O  PO
     Route: 048
     Dates: start: 20070529, end: 20070613
  3. XELODA [Concomitant]
  4. ARIXTRA [Concomitant]
  5. OXYCONTIN [Concomitant]
  6. LORTAB [Concomitant]

REACTIONS (1)
  - PULMONARY EMBOLISM [None]
